FAERS Safety Report 9313864 (Version 1)
Quarter: 2013Q2

REPORT INFORMATION
  Report Type: Spontaneous
  Country: US (occurrence: US)
  Receive Date: 20130529
  Receipt Date: 20130529
  Transmission Date: 20140414
  Serious: No
  Sender: FDA-Public Use
  Company Number: US-BIOGENIDEC-2013BI047253

PATIENT
  Age: 36 Year
  Sex: Female

DRUGS (1)
  1. TYSABRI [Suspect]
     Indication: MULTIPLE SCLEROSIS
     Route: 042
     Dates: start: 20130517

REACTIONS (5)
  - Muscle spasms [Recovered/Resolved]
  - Spondylolisthesis [Recovered/Resolved]
  - Decreased appetite [Unknown]
  - Hypotension [Unknown]
  - Nausea [Recovered/Resolved]
